FAERS Safety Report 6939128-0 (Version None)
Quarter: 2010Q3

REPORT INFORMATION
  Report Type: 
  Country: None (occurrence: None)
  Receive Date: 20100824
  Receipt Date: 20100810
  Transmission Date: 20110219
  Serious: No
  Sender: FDA-Public Use
  Company Number: US-PFIZER INC-2007007035

PATIENT
  Age: 76 Year
  Sex: Male
  Weight: 71 kg

DRUGS (3)
  1. LIPITOR [Suspect]
     Indication: BLOOD CHOLESTEROL INCREASED
     Dosage: 10 MG, DAILY
     Route: 048
  2. LIPITOR [Suspect]
     Dosage: 5MG DAILY BY SPLITTING THE 10MG TABLETS IN HALF
     Dates: start: 20070101
  3. ALPRAZOLAM [Concomitant]
     Indication: ANXIETY
     Dosage: 0.25 MG, DAILY

REACTIONS (3)
  - FATIGUE [None]
  - HIGH DENSITY LIPOPROTEIN DECREASED [None]
  - PARAESTHESIA [None]
